FAERS Safety Report 7655547-1 (Version None)
Quarter: 2011Q3

REPORT INFORMATION
  Report Type: 
  Country: None (occurrence: None)
  Receive Date: 20110801
  Receipt Date: 20110719
  Transmission Date: 20111222
  Serious: Yes (Other)
  Sender: FDA-Public Use
  Company Number: 11-401

PATIENT
  Age: 62 Year
  Sex: Female

DRUGS (2)
  1. ERGOCALCIFEROL [Suspect]
     Indication: HYPOPARATHYROIDISM
     Dosage: 1 X WEEK/ 1 DF
     Dates: start: 20100101, end: 20100101
  2. ERGOCALCIFEROL [Suspect]
     Indication: RICKETS
     Dosage: 1 X WEEK/ 1 DF
     Dates: start: 20100101, end: 20100101

REACTIONS (7)
  - WHEELCHAIR USER [None]
  - MUSCLE SPASMS [None]
  - MYALGIA [None]
  - INSOMNIA [None]
  - ARTHRALGIA [None]
  - ABASIA [None]
  - TOXICITY TO VARIOUS AGENTS [None]
